FAERS Safety Report 4989392-2 (Version None)
Quarter: 2006Q2

REPORT INFORMATION
  Report Type: 
  Country: None (occurrence: None)
  Receive Date: 20060426
  Receipt Date: 20060412
  Transmission Date: 20061013
  Serious: Yes (Other)
  Sender: FDA-Public Use
  Company Number: US200603003352

PATIENT
  Age: 14 Year
  Sex: Female
  Weight: 60.8 kg

DRUGS (2)
  1. STRATTERA [Suspect]
     Indication: ATTENTION DEFICIT/HYPERACTIVITY DISORDER
     Dosage: 40 MG,
     Dates: start: 20040101, end: 20040901
  2. DEPO-PROVERA [Concomitant]

REACTIONS (3)
  - CATATONIA [None]
  - IMMOBILE [None]
  - MUSCLE RIGIDITY [None]
